FAERS Safety Report 4928573-0 (Version None)
Quarter: 2006Q1

REPORT INFORMATION
  Report Type: 
  Country: None (occurrence: None)
  Receive Date: 20060223
  Receipt Date: 20060131
  Transmission Date: 20060701
  Serious: Yes (Other)
  Sender: FDA-Public Use
  Company Number: US200602000109

PATIENT
  Sex: Female
  Weight: 1.8 kg

DRUGS (2)
  1. PROZAC [Suspect]
     Dosage: TRANSPLACENTAL
     Route: 064
     Dates: start: 20041226, end: 20050730
  2. ZYRTEC [Concomitant]

REACTIONS (8)
  - ABSCESS [None]
  - APGAR SCORE LOW [None]
  - BRANCHIAL CLEFT CYST [None]
  - CAESAREAN SECTION [None]
  - DRUG EXPOSURE DURING PREGNANCY [None]
  - NEONATAL DISORDER [None]
  - PREMATURE BABY [None]
  - STAPHYLOCOCCAL INFECTION [None]
